FAERS Safety Report 8611947-4 (Version None)
Quarter: 2012Q3

REPORT INFORMATION
  Report Type: 
  Country: None (occurrence: None)
  Receive Date: 20120822
  Receipt Date: 20120817
  Transmission Date: 20120928
  Serious: Yes (Other)
  Sender: FDA-Public Use
  Company Number: US-PFIZER INC-2012154039

PATIENT
  Age: 58 Year
  Sex: Female

DRUGS (21)
  1. LYRICA [Suspect]
     Dosage: 100 MG, 2X/DAY
  2. CITALOPRAM HYDROBROMIDE [Concomitant]
     Dosage: 20 MG, UNK
  3. HUMULIN R [Concomitant]
     Dosage: UNK
  4. LORATADINE [Concomitant]
     Dosage: 10 MG, UNK
  5. LEVEMIR [Concomitant]
     Dosage: UNK
  6. POTASSIUM GLUCONATE [Concomitant]
     Dosage: 100 MG, UNK
  7. FUROSEMIDE [Concomitant]
     Dosage: 80 MG, UNK
  8. RANITIDINE HYDROCHLORIDE [Concomitant]
     Dosage: 150
  9. NIACIN [Concomitant]
     Dosage: 500 MG, UNK
  10. PROMETHAZINE HYDROCHLORIDE [Concomitant]
     Dosage: 25 MG, UNK
  11. NEXIUM [Concomitant]
     Dosage: 40 MG, UNK
  12. ALBUTEROL SULFATE [Concomitant]
     Dosage: UNK
  13. HYDROCODONE BITARTRATE + ACETAMINOPHEN [Concomitant]
     Dosage: 7.5-500 MG
  14. CEPHALEXIN [Concomitant]
     Dosage: 500 MG, UNK
  15. SIMVASTATIN [Concomitant]
     Dosage: 40 MG, UNK
  16. CYCLOBENZAPRINE HYDROCHLORIDE [Concomitant]
     Dosage: 10 MG, UNK
  17. SINGULAIR [Concomitant]
     Dosage: 10 MG, UNK
  18. DILTIAZEM HYDROCHLORIDE [Concomitant]
     Dosage: 120 MG, UNK
  19. SPIRONOLACTONE [Concomitant]
     Dosage: 25 MG, UNK
  20. SPIRIVA [Concomitant]
     Dosage: 18 UG, UNK
  21. DETROL LA [Concomitant]
     Dosage: 4 MG, UNK

REACTIONS (15)
  - ESSENTIAL HYPERTENSION [None]
  - DIABETIC NEUROPATHY [None]
  - HYPERTONIC BLADDER [None]
  - ASTHMA [None]
  - TYPE 2 DIABETES MELLITUS [None]
  - DYSURIA [None]
  - OBESITY [None]
  - OEDEMA [None]
  - GASTROOESOPHAGEAL REFLUX DISEASE [None]
  - CHRONIC OBSTRUCTIVE PULMONARY DISEASE [None]
  - HYPERLIPIDAEMIA [None]
  - RHINITIS ALLERGIC [None]
  - DEPRESSION [None]
  - ARTHROPATHY [None]
  - NAUSEA [None]
